FAERS Safety Report 5277976-6 (Version None)
Quarter: 2007Q1

REPORT INFORMATION
  Report Type: 
  Country: None (occurrence: None)
  Receive Date: 20070321
  Receipt Date: 20070307
  Transmission Date: 20070707
  Serious: Yes (Other)
  Sender: FDA-Public Use
  Company Number: 153781ISR

PATIENT
  Age: 32 Year
  Sex: Male

DRUGS (5)
  1. CISPLATIN [Suspect]
     Indication: TESTIS CANCER
     Dosage: ?? (20 MG/M2) ??
  2. ETOPOSIDE [Suspect]
     Indication: TESTIS CANCER
     Dosage: SEE IMAGE
  3. BLEOMYCIN [Suspect]
     Indication: TESTIS CANCER
  4. CARBOPLATIN [Suspect]
     Indication: TESTIS CANCER
     Dosage: (1250 MG/M2)
  5. IFOSFAMIDE [Suspect]
     Indication: TESTIS CANCER
     Dosage: 7.5 G/M2

REACTIONS (3)
  - AZOOSPERMIA [None]
  - BLOOD FOLLICLE STIMULATING HORMONE INCREASED [None]
  - BLOOD LUTEINISING HORMONE INCREASED [None]
